FAERS Safety Report 5074336-8 (Version None)
Quarter: 2006Q3

REPORT INFORMATION
  Report Type: 
  Country: None (occurrence: None)
  Receive Date: 20060808
  Receipt Date: 20050714
  Transmission Date: 20061208
  Serious: No
  Sender: FDA-Public Use
  Company Number: US-AMGEN-KDL142897

PATIENT
  Sex: Female
  Weight: 65.8 kg

DRUGS (5)
  1. PROCRIT [Suspect]
     Indication: ANAEMIA OF MALIGNANT DISEASE
     Route: 058
  2. PROTONIX [Concomitant]
  3. ALLOPURINOL [Concomitant]
  4. FUROSEMIDE [Concomitant]
  5. SYNTHROID [Concomitant]

REACTIONS (4)
  - CHEST PAIN [None]
  - DIZZINESS [None]
  - DYSPNOEA [None]
  - PAIN IN EXTREMITY [None]
